FAERS Safety Report 10142072 (Version 1)
Quarter: 2014Q2

REPORT INFORMATION
  Report Type: Spontaneous
  Country: PH (occurrence: PH)
  Receive Date: 20140429
  Receipt Date: 20140429
  Transmission Date: 20141212
  Serious: Yes (Death, Other)
  Sender: FDA-Public Use
  Company Number: PH-009507513-1404PHL013339

PATIENT
  Age: 54 Year
  Sex: Male

DRUGS (1)
  1. JANUVIA [Suspect]
     Dosage: 1 TABLET 50 MG, BID
     Route: 048

REACTIONS (3)
  - Cardiac failure [Fatal]
  - Diabetic complication [Fatal]
  - Inappropriate schedule of drug administration [Unknown]
